FAERS Safety Report 4983652-7 (Version None)
Quarter: 2006Q1

REPORT INFORMATION
  Report Type: 
  Country: None (occurrence: None)
  Receive Date: 20060227
  Receipt Date: 20050509
  Transmission Date: 20060701
  Serious: Yes (Hospitalization)
  Sender: FDA-Public Use
  Company Number: WAES 0505USA01274

PATIENT
  Age: 51 Year
  Sex: Male

DRUGS (1)
  1. ZOCOR [Suspect]
     Dosage: 80 MG DAILY PO
     Route: 048
     Dates: start: 20020501, end: 20030723

REACTIONS (2)
  - RENAL FAILURE [None]
  - RHABDOMYOLYSIS [None]
